FAERS Safety Report 25972621 (Version 2)
Quarter: 2025Q4

REPORT INFORMATION
  Report Type: Spontaneous
  Country: US (occurrence: None)
  Receive Date: 20251029
  Receipt Date: 20251215
  Transmission Date: 20260118
  Serious: No
  Sender: UCB
  Company Number: US-UCBSA-2025044929

PATIENT
  Age: 54 Year

DRUGS (2)
  1. BIMZELX [Suspect]
     Active Substance: BIMEKIZUMAB-BKZX
     Indication: Hidradenitis
     Dosage: 320 MILLIGRAM, EV 2 WEEKS(QOW)
  2. COSENTYX UNOREADY [Concomitant]
     Indication: Product used for unknown indication
     Dosage: UNK

REACTIONS (4)
  - Hidradenitis [Unknown]
  - Candida infection [Unknown]
  - Condition aggravated [Unknown]
  - Therapy interrupted [Unknown]
